FAERS Safety Report 8849166 (Version 3)
Quarter: 2012Q4

REPORT INFORMATION
  Report Type: 
  Country: JP (occurrence: JP)
  Receive Date: 20121019
  Receipt Date: 20121119
  Transmission Date: 20130627
  Serious: Yes (Death, Hospitalization, Other)
  Sender: FDA-Public Use
  Company Number: PHHY2012JP092546

PATIENT
  Sex: Male
  Weight: 56 kg

DRUGS (2)
  1. CICLOSPORIN [Suspect]
     Indication: INTERSTITIAL LUNG DISEASE
     Dosage: 100 mg, QD
     Route: 048
     Dates: end: 200709
  2. PREDNISOLONE [Concomitant]
     Indication: INTERSTITIAL LUNG DISEASE
     Dates: start: 200304

REACTIONS (12)
  - Interstitial lung disease [Fatal]
  - Epistaxis [Fatal]
  - Haemoptysis [Fatal]
  - Pyrexia [Fatal]
  - Hypoxia [Fatal]
  - Cough [Fatal]
  - Pneumonia [Fatal]
  - Microscopic polyangiitis [Unknown]
  - Vasculitis necrotising [Unknown]
  - Pulmonary alveolar haemorrhage [Unknown]
  - Renal impairment [Recovered/Resolved]
  - Bronchopneumonia [Unknown]
